FAERS Safety Report 8604854-4 (Version None)
Quarter: 2012Q3

REPORT INFORMATION
  Report Type: 
  Country: None (occurrence: None)
  Receive Date: 20120820
  Receipt Date: 20120814
  Transmission Date: 20120928
  Serious: Yes (Other)
  Sender: FDA-Public Use
  Company Number: US-JNJFOC-20120803841

PATIENT
  Sex: Male

DRUGS (2)
  1. COUMADIN [Suspect]
     Indication: ANTICOAGULANT THERAPY
     Route: 065
  2. NUCYNTA ER [Suspect]
     Indication: PAIN
     Route: 065

REACTIONS (1)
  - RECTAL HAEMORRHAGE [None]
